FAERS Safety Report 18408577 (Version 1)
Quarter: 2020Q4

REPORT INFORMATION
  Report Type: Spontaneous
  Country: US (occurrence: US)
  Receive Date: 20201020
  Receipt Date: 20201020
  Transmission Date: 20210114
  Serious: No
  Sender: FDA-Public Use
  Company Number: US-CELGENEUS-USA-20201003742

PATIENT
  Sex: Female

DRUGS (1)
  1. FEDRATINIB [Suspect]
     Active Substance: FEDRATINIB
     Indication: MYELOFIBROSIS
     Dosage: 200 MILLIGRAM
     Route: 048
     Dates: start: 20200803

REACTIONS (1)
  - Cerebral disorder [Unknown]

NARRATIVE: CASE EVENT DATE: 2020
